FAERS Safety Report 9010858 (Version 1)
Quarter: 2013Q1

REPORT INFORMATION
  Report Type: Report from Study
  Country: CA (occurrence: CA)
  Receive Date: 20130109
  Receipt Date: 20130109
  Transmission Date: 20140127
  Serious: Yes (Hospitalization)
  Sender: FDA-Public Use
  Company Number: CA-JNJFOC-20130102047

PATIENT
  Age: 51 Year
  Sex: Female
  Weight: 53.2 kg

DRUGS (8)
  1. REMICADE [Suspect]
     Indication: CROHN^S DISEASE
     Route: 042
  2. REMICADE [Suspect]
     Indication: CROHN^S DISEASE
     Route: 042
     Dates: start: 20121121
  3. IMURAN [Concomitant]
     Route: 048
  4. VITAMIN D [Concomitant]
     Route: 065
  5. SERTRALINE [Concomitant]
     Route: 065
  6. METHOTREXATE [Concomitant]
     Dosage: DOSE:  5CC SUBCUTANEOUSLY WEEKLY FOR 3 WEEKS
     Route: 058
  7. TRAZODONE [Concomitant]
     Route: 065
  8. OXYCONTIN [Concomitant]
     Route: 065

REACTIONS (3)
  - Intestinal mucosal hypertrophy [Unknown]
  - Abdominal pain [Recovered/Resolved]
  - Pyrexia [Recovered/Resolved]
